FAERS Safety Report 22181107 (Version 2)
Quarter: 2023Q2

REPORT INFORMATION
  Report Type: Spontaneous
  Country: CN (occurrence: CN)
  Receive Date: 20230406
  Receipt Date: 20230412
  Transmission Date: 20230722
  Serious: Yes (Hospitalization, Other)
  Sender: FDA-Public Use
  Company Number: CN-009507513-2304CHN001271

PATIENT
  Age: 41 Year
  Sex: Male
  Weight: 64 kg

DRUGS (8)
  1. KEYTRUDA [Suspect]
     Active Substance: PEMBROLIZUMAB
     Indication: Radiotherapy
     Dosage: 200 MILLIGRAM, ONCE
     Route: 041
     Dates: start: 20230222, end: 20230222
  2. KEYTRUDA [Suspect]
     Active Substance: PEMBROLIZUMAB
     Indication: Neoplasm malignant
  3. KEYTRUDA [Suspect]
     Active Substance: PEMBROLIZUMAB
     Indication: Malignant neoplasm of renal pelvis
  4. KEYTRUDA [Suspect]
     Active Substance: PEMBROLIZUMAB
     Indication: Bladder cancer
  5. PACLITAXEL [Suspect]
     Active Substance: PACLITAXEL
     Indication: Radiotherapy
     Dosage: 400 MILLIGRAM, QW
     Route: 041
     Dates: start: 20230223, end: 20230224
  6. PACLITAXEL [Suspect]
     Active Substance: PACLITAXEL
     Indication: Neoplasm malignant
  7. PACLITAXEL [Suspect]
     Active Substance: PACLITAXEL
     Indication: Malignant neoplasm of renal pelvis
  8. PACLITAXEL [Suspect]
     Active Substance: PACLITAXEL
     Indication: Bladder cancer

REACTIONS (2)
  - Myelosuppression [Unknown]
  - Product use in unapproved indication [Unknown]

NARRATIVE: CASE EVENT DATE: 20230222
